FAERS Safety Report 13445017 (Version 2)
Quarter: 2017Q2

REPORT INFORMATION
  Report Type: Spontaneous
  Country: SE (occurrence: SE)
  Receive Date: 20170414
  Receipt Date: 20170619
  Transmission Date: 20170830
  Serious: Yes (Congenital Anomaly)
  Sender: FDA-Public Use
  Company Number: SE-PFIZER INC-2017166212

PATIENT

DRUGS (2)
  1. MIFEGYNE [Suspect]
     Active Substance: MIFEPRISTONE
     Indication: ABORTION INDUCED
     Dosage: 600 MG, TOTAL
     Route: 064
     Dates: start: 20071203
  2. CYTOTEC [Suspect]
     Active Substance: MISOPROSTOL
     Indication: ABORTION INDUCED
     Dosage: 800 ?G, TOTAL
     Route: 064
     Dates: start: 20071205

REACTIONS (5)
  - Maternal exposure during pregnancy [Unknown]
  - Cleft palate [Not Recovered/Not Resolved]
  - Limb deformity [Not Recovered/Not Resolved]
  - Anencephaly [Not Recovered/Not Resolved]
  - Talipes [Not Recovered/Not Resolved]
